FAERS Safety Report 19177645 (Version 1)
Quarter: 2021Q2

REPORT INFORMATION
  Report Type: Report from Study
  Country: None (occurrence: US)
  Receive Date: 20210426
  Receipt Date: 20210426
  Transmission Date: 20210717
  Serious: Yes (Other)
  Sender: FDA-Public Use
  Company Number: US-ABBVIE-21K-163-3870489-00

PATIENT
  Sex: Female

DRUGS (1)
  1. HUMIRA [Suspect]
     Active Substance: ADALIMUMAB
     Indication: UVEITIS
     Dosage: CITRATE FREE
     Route: 058

REACTIONS (7)
  - Blindness [Unknown]
  - Intraocular pressure increased [Recovered/Resolved]
  - Visual impairment [Unknown]
  - Glaucoma [Recovered/Resolved]
  - Adhesion [Unknown]
  - Post procedural complication [Unknown]
  - Eyelid ptosis [Unknown]
